FAERS Safety Report 10383151 (Version 4)
Quarter: 2015Q3

REPORT INFORMATION
  Report Type: Spontaneous
  Country: US (occurrence: US)
  Receive Date: 20140813
  Receipt Date: 20150717
  Transmission Date: 20151125
  Serious: Yes (Other)
  Sender: FDA-Public Use
  Company Number: US-AMGEN-USASP2014009934

PATIENT
  Age: 49 Year
  Sex: Female

DRUGS (3)
  1. ENBREL [Suspect]
     Active Substance: ETANERCEPT
     Indication: PSORIASIS
     Dosage: 50 MG, QWK
     Route: 058
     Dates: start: 201304, end: 201407
  2. ENBREL [Suspect]
     Active Substance: ETANERCEPT
     Indication: PSORIATIC ARTHROPATHY
     Dosage: UNK
     Route: 058
  3. ENBREL [Suspect]
     Active Substance: ETANERCEPT
     Dosage: UNK
     Route: 058

REACTIONS (11)
  - Menorrhagia [Recovered/Resolved]
  - Arthritis [Unknown]
  - Vaginal haemorrhage [Unknown]
  - Metrorrhagia [Unknown]
  - Treatment failure [Unknown]
  - Knee arthroplasty [Unknown]
  - Spinal fusion surgery [Unknown]
  - Dysmenorrhoea [Not Recovered/Not Resolved]
  - Knee operation [Unknown]
  - Menopausal symptoms [Unknown]
  - Ingrown hair [Recovered/Resolved]

NARRATIVE: CASE EVENT DATE: 2013
